FAERS Safety Report 18051899 (Version 1)
Quarter: 2020Q3

REPORT INFORMATION
  Report Type: Spontaneous
  Country: ES (occurrence: ES)
  Receive Date: 20200722
  Receipt Date: 20200722
  Transmission Date: 20201103
  Serious: Yes (Hospitalization, Other)
  Sender: FDA-Public Use
  Company Number: ES-TEVA-2020-ES-1802742

PATIENT
  Age: 68 Year
  Sex: Female
  Weight: 75 kg

DRUGS (19)
  1. DOCETAXEL. [Suspect]
     Active Substance: DOCETAXEL
     Indication: PRODUCT USED FOR UNKNOWN INDICATION
     Dosage: UNK, DAILY
     Route: 065
     Dates: start: 20130701
  2. FOSFOMYCINE [Suspect]
     Active Substance: FOSFOMYCIN
     Indication: PRODUCT USED FOR UNKNOWN INDICATION
     Dosage: 1 GRAM DAILY;  24 HR
     Route: 065
     Dates: start: 20130704, end: 20130705
  3. TRASTUZUMAB. [Suspect]
     Active Substance: TRASTUZUMAB
     Indication: HER2 POSITIVE BREAST CANCER
     Route: 058
     Dates: start: 20131022
  4. DOMPERIDONE [Concomitant]
     Active Substance: DOMPERIDONE
     Dosage: 20/MG/ML
     Dates: start: 20130805
  5. RANITIDINE. [Concomitant]
     Active Substance: RANITIDINE
     Dosage: 300 MG
     Route: 042
     Dates: start: 201211
  6. NEUPOGEN [Concomitant]
     Active Substance: FILGRASTIM
     Dosage: 150000/U/ML
     Dates: start: 20130819, end: 20130820
  7. TRASTUZUMAB. [Suspect]
     Active Substance: TRASTUZUMAB
     Dosage: MOST RECENT DOSE OF RHUPH20/TRASTUZUMAB WAS RECEIVED ON 10/SEP/2013.
     Route: 058
     Dates: start: 20130729, end: 20131001
  8. CARBOPLATIN. [Suspect]
     Active Substance: CARBOPLATIN
     Dosage: UNK, DAILY
     Route: 065
     Dates: start: 20130701, end: 20130729
  9. FERROUS SULFATE. [Concomitant]
     Active Substance: FERROUS SULFATE
     Dates: start: 20130729, end: 20130730
  10. NEUPOGEN [Concomitant]
     Active Substance: FILGRASTIM
     Dosage: 6000/U/ML
     Dates: start: 20130805, end: 20130807
  11. TRASTUZUMAB. [Suspect]
     Active Substance: TRASTUZUMAB
     Dosage: DATE OF LAST DOSE PRIOR TO SAE:10/SEP/2019, PERMENANTLY DISCONTINUED ON 15/APR/2014. 600 MG
     Route: 058
     Dates: start: 20130701, end: 20130722
  12. CARBOPLATIN. [Suspect]
     Active Substance: CARBOPLATIN
     Indication: PRODUCT USED FOR UNKNOWN INDICATION
     Route: 065
     Dates: start: 20130729, end: 20130729
  13. SIMVASTATIN. [Concomitant]
     Active Substance: SIMVASTATIN
     Dosage: 40 MG
     Dates: start: 201211
  14. NEUPOGEN [Concomitant]
     Active Substance: FILGRASTIM
     Dosage: 6000/MIU/L
     Dates: start: 20130820, end: 20130824
  15. CARBOPLATIN. [Suspect]
     Active Substance: CARBOPLATIN
     Dosage: UNK, DAILY
     Route: 065
     Dates: start: 20130819, end: 20130819
  16. METFORMIN [Suspect]
     Active Substance: METFORMIN HYDROCHLORIDE
     Indication: DIABETES MELLITUS
     Dosage: 850 MG
     Route: 048
     Dates: start: 201211, end: 201310
  17. NITROFURANTOINA [Concomitant]
     Active Substance: NITROFURANTOIN
     Dates: start: 20130805, end: 20130812
  18. PANTOPRAZOL [PANTOPRAZOLE] [Concomitant]
     Active Substance: PANTOPRAZOLE
     Dates: start: 201211
  19. PARACETAMOL [Concomitant]
     Active Substance: ACETAMINOPHEN
     Dosage: 500 MG
     Dates: start: 201211

REACTIONS (4)
  - Acute kidney injury [Recovered/Resolved]
  - Ejection fraction decreased [Unknown]
  - Diarrhoea [Recovered/Resolved]
  - Blood creatinine decreased [Unknown]

NARRATIVE: CASE EVENT DATE: 20130706
